FAERS Safety Report 16772597 (Version 1)
Quarter: 2019Q3

REPORT INFORMATION
  Report Type: Spontaneous
  Country: IT (occurrence: IT)
  Receive Date: 20190904
  Receipt Date: 20190904
  Transmission Date: 20191005
  Serious: Yes (Hospitalization)
  Sender: FDA-Public Use
  Company Number: PHHY2019IT202573

PATIENT
  Age: 42 Year
  Sex: Female

DRUGS (2)
  1. BUPROPION SANDOZ [Suspect]
     Active Substance: BUPROPION
     Indication: PRODUCT USED FOR UNKNOWN INDICATION
     Dosage: 150 MG, QD
     Route: 048
     Dates: start: 20190128, end: 20190201
  2. SERTRALINE HYDROCHLORIDE. [Concomitant]
     Active Substance: SERTRALINE HYDROCHLORIDE
     Indication: PRODUCT USED FOR UNKNOWN INDICATION
     Dosage: 200 MG, QD
     Route: 048

REACTIONS (7)
  - Ataxia [Unknown]
  - Dysarthria [Unknown]
  - Accommodation disorder [Unknown]
  - Vertigo [Unknown]
  - Aphasia [Unknown]
  - Diplopia [Unknown]
  - Nausea [Unknown]

NARRATIVE: CASE EVENT DATE: 20190201
